FAERS Safety Report 9235982 (Version 1)
Quarter: 2013Q2

REPORT INFORMATION
  Report Type: Spontaneous
  Country: BR (occurrence: BR)
  Receive Date: 20130417
  Receipt Date: 20130417
  Transmission Date: 20140414
  Serious: Yes (Other)
  Sender: FDA-Public Use
  Company Number: BR-AMGEN-BRASP2012047760

PATIENT
  Age: 57 Year
  Sex: Female
  Weight: 56 kg

DRUGS (5)
  1. ENBREL [Suspect]
     Indication: RHEUMATOID ARTHRITIS
     Dosage: 50 MG, ONCE WEEKLY
     Route: 058
     Dates: start: 201205, end: 201211
  2. CALCIUM [Concomitant]
     Dosage: UNK
  3. RISEDRONATE [Concomitant]
     Dosage: UNK
  4. CHLOROQUINE [Concomitant]
     Dosage: UNK
  5. METHOTREXATE [Concomitant]
     Dosage: UNK

REACTIONS (2)
  - Systemic lupus erythematosus [Unknown]
  - Injection site pain [Unknown]
